FAERS Safety Report 7544832-X (Version None)
Quarter: 2011Q2

REPORT INFORMATION
  Report Type: 
  Country: None (occurrence: None)
  Receive Date: 20110614
  Receipt Date: 20110601
  Transmission Date: 20111010
  Serious: Yes (Other)
  Sender: FDA-Public Use
  Company Number: US-BAYER-2011-047902

PATIENT
  Age: 47 Year
  Sex: Female

DRUGS (2)
  1. CLIMARA [Suspect]
     Indication: OESTROGEN DEFICIENCY
     Dosage: UNK
     Route: 062
     Dates: start: 20110501, end: 20110101
  2. CLIMARA [Suspect]
     Indication: MENOPAUSE

REACTIONS (1)
  - APPLICATION SITE ULCER [None]
